FAERS Safety Report 15629944 (Version 1)
Quarter: 2018Q4

REPORT INFORMATION
  Report Type: Spontaneous
  Country: IT (occurrence: IT)
  Receive Date: 20181117
  Receipt Date: 20181117
  Transmission Date: 20190205
  Serious: Yes (Other)
  Sender: FDA-Public Use
  Company Number: IT-MYLANLABS-2018M1086234

PATIENT
  Age: 5 Decade
  Sex: Male

DRUGS (7)
  1. SUNITINIB [Concomitant]
     Active Substance: SUNITINIB
     Indication: MALIGNANT NEOPLASM OF THYMUS
     Dosage: DOSE: 50MG/DAY FOR 4 WEEKS FOLLOWED BY 2 WEEKS OFF-THERAPY
     Route: 065
     Dates: start: 2014
  2. ETOPOSIDE. [Suspect]
     Active Substance: ETOPOSIDE
     Indication: MALIGNANT NEOPLASM OF THYMUS
     Dosage: DOSE: 50MG/DAY FOR 3 WEEKS, FOLLOWED BY ONE WEEK OFF-THERAPY
     Route: 048
  3. PACLITAXEL. [Concomitant]
     Active Substance: PACLITAXEL
     Indication: MALIGNANT NEOPLASM OF THYMUS
     Dosage: THREE CYCLES ADMINISTERED
     Route: 065
  4. CAPECITABINE. [Suspect]
     Active Substance: CAPECITABINE
     Indication: MALIGNANT NEOPLASM OF THYMUS
     Route: 065
  5. GEMCITABINE [Suspect]
     Active Substance: GEMCITABINE\GEMCITABINE HYDROCHLORIDE
     Indication: MALIGNANT NEOPLASM OF THYMUS
     Route: 065
  6. SUNITINIB [Concomitant]
     Active Substance: SUNITINIB
     Dosage: DOSE: 50MG/DAY FOR 1 WEEK FOLLOWED BY 1 WEEK OFF-THERAPY
     Route: 065
  7. CARBOPLATINUM [Concomitant]
     Active Substance: CARBOPLATIN
     Indication: MALIGNANT NEOPLASM OF THYMUS
     Dosage: THREE CYCLES ADMINISTERED
     Route: 065

REACTIONS (1)
  - Therapy non-responder [Unknown]
